FAERS Safety Report 10395093 (Version 2)
Quarter: 2014Q2

REPORT INFORMATION
  Report Type: Spontaneous
  Country: US (occurrence: None)
  Receive Date: 20130328
  Receipt Date: 20140604
  Transmission Date: 20141212
  Serious: Yes (Hospitalization)
  Sender: FDA-Public Use
  Company Number: 20120312CINRY2728

PATIENT
  Age: 29 Year
  Sex: Female
  Weight: 45.76 kg

DRUGS (3)
  1. CINRYZE [Suspect]
     Indication: HEREDITARY ANGIOEDEMA
     Dosage: 1000 UNIT, 1  IN 3 D, INTRAVENOUS
     Route: 042
     Dates: start: 20120303, end: 201203
  2. CINRYZE [Suspect]
     Indication: PROPHYLAXIS
     Dosage: 1000 UNIT, 1  IN 3 D, INTRAVENOUS
     Route: 042
     Dates: start: 20120303, end: 201203
  3. PRENATAL VITAMINS [Concomitant]

REACTIONS (8)
  - Hereditary angioedema [None]
  - Maternal exposure during pregnancy [None]
  - Migraine [None]
  - Chest discomfort [None]
  - Infusion related reaction [None]
  - Inappropriate schedule of drug administration [None]
  - Infusion site erythema [None]
  - Hypersensitivity [None]
